FAERS Safety Report 4683747-1 (Version None)
Quarter: 2005Q2

REPORT INFORMATION
  Report Type: 
  Country: None (occurrence: None)
  Receive Date: 20050602
  Receipt Date: 20050124
  Transmission Date: 20051028
  Serious: No
  Sender: FDA-Public Use
  Company Number: USA050189052

PATIENT
  Age: 47 Year
  Sex: Female

DRUGS (3)
  1. CYMBALTA [Suspect]
  2. OXYCODONE HCL [Concomitant]
  3. METHADONE HCL [Concomitant]

REACTIONS (1)
  - DRUG SCREEN NEGATIVE [None]
